FAERS Safety Report 10711664 (Version 1)
Quarter: 2015Q1

REPORT INFORMATION
  Report Type: Spontaneous
  Country: US (occurrence: US)
  Receive Date: 20150114
  Receipt Date: 20150114
  Transmission Date: 20150721
  Serious: Yes (Other)
  Sender: FDA-Public Use
  Company Number: US-ROXANE LABORATORIES, INC.-2015-RO-00026RO

PATIENT
  Age: 46 Year
  Sex: Male
  Weight: 80 kg

DRUGS (14)
  1. LEVETIRACETAM. [Suspect]
     Active Substance: LEVETIRACETAM
     Indication: SEIZURE
     Dosage: 2 G
     Route: 048
  2. LEUCOVORIN [Concomitant]
     Active Substance: LEUCOVORIN
     Dosage: 200 MG
     Route: 042
  3. INSULIN ASPART [Concomitant]
     Active Substance: INSULIN ASPART
     Route: 065
  4. PROCHLORPERAZINE. [Concomitant]
     Active Substance: PROCHLORPERAZINE
     Route: 065
  5. SODIUM BICARBONATE. [Concomitant]
     Active Substance: SODIUM BICARBONATE
     Indication: PH URINE
     Dosage: 125 ML/H (3L/D)
     Route: 065
  6. ONDANSETRON [Concomitant]
     Active Substance: ONDANSETRON
     Route: 065
  7. LISINOPRIL. [Concomitant]
     Active Substance: LISINOPRIL
     Route: 065
  8. GLIPIZIDE. [Concomitant]
     Active Substance: GLIPIZIDE
     Route: 065
  9. METHOTREXATE [Suspect]
     Active Substance: METHOTREXATE
     Indication: OSTEOSARCOMA
     Route: 042
  10. LEUCOVORIN [Concomitant]
     Active Substance: LEUCOVORIN
     Indication: DRUG TOXICITY PROPHYLAXIS
     Dosage: 100 MG
     Route: 048
  11. ASPIRIN. [Concomitant]
     Active Substance: ASPIRIN
     Route: 065
  12. FAMOTIDINE. [Concomitant]
     Active Substance: FAMOTIDINE
     Route: 065
  13. SIMVASTATIN. [Concomitant]
     Active Substance: SIMVASTATIN
     Route: 065
  14. FLUOXETINE [Concomitant]
     Active Substance: FLUOXETINE\FLUOXETINE HYDROCHLORIDE
     Route: 065

REACTIONS (1)
  - Drug clearance decreased [Unknown]
